FAERS Safety Report 19889977 (Version 2)
Quarter: 2021Q4

REPORT INFORMATION
  Report Type: Spontaneous
  Country: RO (occurrence: RO)
  Receive Date: 20210927
  Receipt Date: 20211223
  Transmission Date: 20220303
  Serious: Yes (Death, Hospitalization, Other)
  Sender: FDA-Public Use
  Company Number: RO-009507513-2109ROM005409

PATIENT
  Age: 47 Year
  Sex: Female

DRUGS (1)
  1. KEYTRUDA [Suspect]
     Active Substance: PEMBROLIZUMAB
     Dosage: 200 MILLIGRAM, Q3W
     Dates: start: 20210310, end: 20210421

REACTIONS (20)
  - Death [Fatal]
  - Malignant neoplasm progression [Unknown]
  - Oliguria [Unknown]
  - Blood creatinine abnormal [Unknown]
  - Blood urea increased [Unknown]
  - Leukocytosis [Unknown]
  - Neutrophilia [Unknown]
  - Blood sodium abnormal [Unknown]
  - Blood potassium abnormal [Unknown]
  - Hydronephrosis [Unknown]
  - Urinary retention [Unknown]
  - Bladder dilatation [Unknown]
  - Acute kidney injury [Unknown]
  - Haemoglobin decreased [Unknown]
  - Hypokalaemia [Unknown]
  - Pyrexia [Unknown]
  - Eastern Cooperative Oncology Group performance status worsened [Unknown]
  - Hyponatraemia [Unknown]
  - Anaemia [Unknown]
  - Inappropriate schedule of product administration [Unknown]

NARRATIVE: CASE EVENT DATE: 20210512
